FAERS Safety Report 6227194-X (Version None)
Quarter: 2009Q2

REPORT INFORMATION
  Report Type: 
  Country: None (occurrence: None)
  Receive Date: 20090612
  Receipt Date: 20090609
  Transmission Date: 20091009
  Serious: Yes (Hospitalization, Disabling)
  Sender: FDA-Public Use
  Company Number: FR-BRISTOL-MYERS SQUIBB COMPANY-14656680

PATIENT
  Age: 76 Year
  Sex: Male

DRUGS (6)
  1. TAXOL [Suspect]
     Indication: OESOPHAGEAL CANCER METASTATIC
     Dosage: THERAPY STARTED ON 30SEP2008 140 MG;12MAR09:TOTAL DOSE-1820 MG
     Dates: start: 20090312, end: 20090312
  2. CARBOPLATIN [Suspect]
     Indication: OESOPHAGEAL CANCER METASTATIC
     Dosage: 160 MG TO 190 MG -START DATE 30SEP2008; 12MAR09:TOTAL DOSE-2290 MG
     Dates: start: 20090312, end: 20090312
  3. DURAGESIC-100 [Concomitant]
     Dosage: TRANSDERMAL PATCH
     Route: 062
  4. AMLOR [Concomitant]
  5. SECTRAL [Concomitant]
  6. MOTILIUM [Concomitant]

REACTIONS (1)
  - ISCHAEMIC STROKE [None]
